FAERS Safety Report 21747939 (Version 1)
Quarter: 2022Q4

REPORT INFORMATION
  Report Type: Spontaneous
  Country: US (occurrence: None)
  Receive Date: 20221217
  Receipt Date: 20221217
  Transmission Date: 20230112
  Serious: Yes (Disabling, Other)
  Sender: FDA-Public Use
  Company Number: None

PATIENT
  Age: 47 Year
  Sex: Female
  Weight: 130.5 kg

DRUGS (1)
  1. GABAPENTIN [Suspect]
     Active Substance: GABAPENTIN
     Dates: start: 20171017, end: 20180201

REACTIONS (5)
  - Fracture [None]
  - Amnesia [None]
  - Visual impairment [None]
  - Tremor [None]
  - Dysphemia [None]

NARRATIVE: CASE EVENT DATE: 20180101
